FAERS Safety Report 25156279 (Version 2)
Quarter: 2025Q2

REPORT INFORMATION
  Report Type: Report from Study
  Country: US (occurrence: US)
  Receive Date: 20250403
  Receipt Date: 20250405
  Transmission Date: 20250717
  Serious: Yes (Other)
  Sender: ALEXION PHARMACEUTICALS
  Company Number: US-ASTRAZENECA-202503USA025418US

PATIENT

DRUGS (1)
  1. OSIMERTINIB [Suspect]
     Active Substance: OSIMERTINIB
     Indication: Lung carcinoma cell type unspecified stage I
     Dosage: 80 MILLIGRAM, QD

REACTIONS (4)
  - Papilloedema [Unknown]
  - Optic disc haemorrhage [Unknown]
  - Eye haemorrhage [Unknown]
  - Muscle spasms [Unknown]
